FAERS Safety Report 10142726 (Version 1)
Quarter: 2014Q2

REPORT INFORMATION
  Report Type: Spontaneous
  Country: US (occurrence: None)
  Receive Date: 20140429
  Receipt Date: 20140429
  Transmission Date: 20141212
  Serious: Yes (Death)
  Sender: FDA-Public Use
  Company Number: None

PATIENT
  Age: 69 Year
  Sex: Male
  Weight: 85.2 kg

DRUGS (3)
  1. REVLIMID [Suspect]
     Indication: PLASMA CELL MYELOMA
     Route: 048
     Dates: start: 201303, end: 20140416
  2. ZOMETA [Suspect]
     Indication: PLASMA CELL MYELOMA
     Dosage: IV INFUSION
     Dates: start: 201303, end: 20140416
  3. ZOMETA [Suspect]
     Indication: METASTASES TO BONE
     Dosage: IV INFUSION
     Dates: start: 201303, end: 20140416

REACTIONS (1)
  - Cardiac arrest [None]
